FAERS Safety Report 7482279-5 (Version None)
Quarter: 2011Q2

REPORT INFORMATION
  Report Type: 
  Country: None (occurrence: None)
  Receive Date: 20110516
  Receipt Date: 20110509
  Transmission Date: 20111010
  Serious: Yes (Death)
  Sender: FDA-Public Use
  Company Number: JP-PFIZER INC-2011090119

PATIENT
  Age: 44 Year
  Sex: Female

DRUGS (1)
  1. VFEND [Suspect]
     Dosage: 150 MG, DAILY
     Route: 048

REACTIONS (4)
  - FUNGAL INFECTION [None]
  - HEPATITIS FULMINANT [None]
  - NEUTROPENIA [None]
  - APLASTIC ANAEMIA [None]
